FAERS Safety Report 9653887 (Version 1)
Quarter: 2013Q4

REPORT INFORMATION
  Report Type: Spontaneous
  Country: US (occurrence: US)
  Receive Date: 20131029
  Receipt Date: 20131029
  Transmission Date: 20140711
  Serious: No
  Sender: FDA-Public Use
  Company Number: US-BIOGENIDEC-2013BI081571

PATIENT
  Age: 59 Year
  Sex: Male

DRUGS (8)
  1. TECFIDERA [Suspect]
     Indication: MULTIPLE SCLEROSIS
     Route: 048
     Dates: start: 20130801
  2. ADVAIR DISKUS [Concomitant]
  3. BACLOFEN [Concomitant]
  4. CYMBALTA [Concomitant]
  5. DOCUSATE SODIUM [Concomitant]
  6. FOLIC ACID [Concomitant]
  7. GABAPENTIN [Concomitant]
  8. SIMVASTATIN [Concomitant]

REACTIONS (1)
  - Muscle spasms [Unknown]
